FAERS Safety Report 10710524 (Version 1)
Quarter: 2015Q1

REPORT INFORMATION
  Report Type: Spontaneous
  Country: US (occurrence: US)
  Receive Date: 20150114
  Receipt Date: 20150114
  Transmission Date: 20150721
  Serious: Yes (Other)
  Sender: FDA-Public Use
  Company Number: US-PURDUE PHARMA-USA-2015-0120190

PATIENT
  Age: 88 Year
  Sex: Female

DRUGS (5)
  1. DIOVAN [Concomitant]
     Active Substance: VALSARTAN
     Dosage: 160 MG, DAILY
     Route: 048
  2. BUTRANS [Suspect]
     Active Substance: BUPRENORPHINE
     Indication: PAIN
     Dosage: 5 MCG/HR, WEEKLY
     Route: 062
  3. TEKTURNA [Concomitant]
     Active Substance: ALISKIREN HEMIFUMARATE
     Indication: HYPERTENSION
     Dosage: UNK UNK, UNK
     Route: 048
  4. LASIX [Concomitant]
     Active Substance: FUROSEMIDE
     Indication: PRODUCT USED FOR UNKNOWN INDICATION
     Dosage: UNK UNK, UNK
     Route: 048
  5. DIOVAN [Concomitant]
     Active Substance: VALSARTAN
     Indication: HYPERTENSION
     Dosage: 320 MG, DAILY
     Route: 048

REACTIONS (3)
  - Drug ineffective [Recovered/Resolved]
  - Feeling abnormal [Unknown]
  - Blood pressure fluctuation [Unknown]

NARRATIVE: CASE EVENT DATE: 201404
